FAERS Safety Report 9940500 (Version 1)
Quarter: 2014Q1

REPORT INFORMATION
  Report Type: Spontaneous
  Country: BR (occurrence: BR)
  Receive Date: 20140303
  Receipt Date: 20140303
  Transmission Date: 20141002
  Serious: Yes (Other)
  Sender: FDA-Public Use
  Company Number: BR-PFIZER INC-2014056625

PATIENT
  Age: 73 Year
  Sex: Female

DRUGS (3)
  1. XALATAN [Suspect]
     Indication: GLAUCOMA
     Dosage: 1 (AS REPORTED)
     Dates: start: 20040418
  2. ATACAND [Concomitant]
     Indication: BLOOD PRESSURE
     Dosage: UNSPECIFIED DOSE, 1X/DAY
  3. CEWIN [Concomitant]
     Dosage: UNK

REACTIONS (1)
  - Cataract [Unknown]
